FAERS Safety Report 10705823 (Version 6)
Quarter: 2015Q2

REPORT INFORMATION
  Report Type: Report from Study
  Country: DE (occurrence: DE)
  Receive Date: 20150112
  Receipt Date: 20150518
  Transmission Date: 20150821
  Serious: Yes (Hospitalization)
  Sender: FDA-Public Use
  Company Number: DE-ROCHE-1518662

PATIENT
  Age: 66 Year
  Sex: Female

DRUGS (15)
  1. CANESTEN [Concomitant]
     Active Substance: CLOTRIMAZOLE
     Route: 065
     Dates: start: 20130225, end: 20130228
  2. TRASTUZUMAB [Suspect]
     Active Substance: TRASTUZUMAB
     Route: 042
  3. FORTECORTIN [Concomitant]
     Active Substance: DEXAMETHASONE
     Route: 065
     Dates: start: 20121203
  4. MCP [Concomitant]
     Active Substance: METOCLOPRAMIDE HYDROCHLORIDE
     Route: 065
     Dates: start: 20121203
  5. PERTUZUMAB [Suspect]
     Active Substance: PERTUZUMAB
     Dosage: MAINTENANCE DOSE
     Route: 042
  6. PANTOPRAZOLE SODIUM. [Concomitant]
     Active Substance: PANTOPRAZOLE SODIUM
     Route: 065
     Dates: start: 20150101
  7. ZOMETA [Concomitant]
     Active Substance: ZOLEDRONIC ACID
     Route: 065
     Dates: start: 20130212
  8. ZOFRAN [Concomitant]
     Active Substance: ONDANSETRON HYDROCHLORIDE
     Route: 065
     Dates: start: 20121203
  9. CIPROBAY [Concomitant]
     Active Substance: CIPROFLOXACIN
     Route: 065
     Dates: start: 20121203, end: 20121208
  10. EMEND [Concomitant]
     Active Substance: APREPITANT
     Route: 065
     Dates: start: 201212
  11. RAMIPRIL. [Concomitant]
     Active Substance: RAMIPRIL
     Route: 065
     Dates: start: 20140828, end: 20140905
  12. PACLITAXEL. [Suspect]
     Active Substance: PACLITAXEL
     Indication: HER-2 POSITIVE BREAST CANCER
     Dosage: LAST DOSE PRIOR TO SAE: 16/DEC/2013
     Route: 042
     Dates: start: 20121112
  13. CANDESARTAN [Concomitant]
     Active Substance: CANDESARTAN
     Dosage: 16/12,5 MG
     Route: 065
     Dates: start: 20140912
  14. PERTUZUMAB [Suspect]
     Active Substance: PERTUZUMAB
     Indication: HER-2 POSITIVE BREAST CANCER
     Dosage: CYCLE 1, LOADING DOSE?LAST DOSE PRIOR TO SAE: 16/DEC/2014
     Route: 042
     Dates: start: 20121112
  15. TRASTUZUMAB [Suspect]
     Active Substance: TRASTUZUMAB
     Indication: HER-2 POSITIVE BREAST CANCER
     Dosage: CYCLE 1, LOADING DOSE ?LAST DOSE PRIOR TO SAE: 16/DEC/2014
     Route: 042
     Dates: start: 20121112

REACTIONS (1)
  - Haematemesis [Recovered/Resolved]

NARRATIVE: CASE EVENT DATE: 20141231
